FAERS Safety Report 5324665-5 (Version None)
Quarter: 2007Q2

REPORT INFORMATION
  Report Type: 
  Country: None (occurrence: None)
  Receive Date: 20070509
  Receipt Date: 20070424
  Transmission Date: 20071010
  Serious: Yes (Other)
  Sender: FDA-Public Use
  Company Number: FSC_00109_2007

PATIENT
  Age: 59 Year
  Sex: Female

DRUGS (2)
  1. VERAPAMIL [Suspect]
     Indication: ANGINA PECTORIS
     Dosage: 120 MG QD ORAL
     Route: 048
     Dates: start: 20060424, end: 20060505
  2. BENDROFLUMETHIAZIDE [Concomitant]

REACTIONS (3)
  - ABNORMAL DREAMS [None]
  - DEPRESSION [None]
  - SUICIDAL IDEATION [None]
